FAERS Safety Report 7612995-3 (Version None)
Quarter: 2011Q3

REPORT INFORMATION
  Report Type: 
  Country: None (occurrence: None)
  Receive Date: 20110713
  Receipt Date: 20110623
  Transmission Date: 20111222
  Serious: No
  Sender: FDA-Public Use
  Company Number: US-005633

PATIENT
  Sex: Male
  Weight: 90.7194 kg

DRUGS (6)
  1. DEGARELIX (240 MG, 80 MG) [Suspect]
     Indication: PROSTATE CANCER
     Dosage: (240 MG 1X SUBCUTANEOUS), (80 MG 1X/MONTH SUBCUTANEOUS)
     Route: 058
     Dates: start: 20110520
  2. DEGARELIX (240 MG, 80 MG) [Suspect]
     Indication: PROSTATE CANCER
     Dosage: (240 MG 1X SUBCUTANEOUS), (80 MG 1X/MONTH SUBCUTANEOUS)
     Route: 058
     Dates: start: 20110421, end: 20110421
  3. CASODEX [Concomitant]
  4. DEGARELIX (240 MG, 80 MG) [Suspect]
  5. CADUET [Concomitant]
  6. MOTRIN [Concomitant]

REACTIONS (1)
  - SKIN DISCOLOURATION [None]
